FAERS Safety Report 8333666-4 (Version None)
Quarter: 2012Q2

REPORT INFORMATION
  Report Type: 
  Country: None (occurrence: None)
  Receive Date: 20120503
  Receipt Date: 20120425
  Transmission Date: 20120825
  Serious: Yes (Other)
  Sender: FDA-Public Use
  Company Number: PHHY2012FR035867

PATIENT
  Age: 32 Year
  Sex: Female

DRUGS (4)
  1. ESTRADIOL VALERATE/DIENOGEST [Concomitant]
     Dosage: UNK UKN, UNK
  2. DESOGESTREL AND ETHINYL ESTRADIOL [Concomitant]
     Dosage: UNK UKN, UNK
  3. LEVONORGESTREL [Suspect]
     Indication: ORAL CONTRACEPTION
     Dosage: 1 DF, QD
  4. TRIELLA [Concomitant]
     Dosage: UNK UKN, UNK

REACTIONS (4)
  - OVARIAN DISORDER [None]
  - MENOMETRORRHAGIA [None]
  - FATIGUE [None]
  - GASTROENTERITIS [None]
